FAERS Safety Report 10094922 (Version 1)
Quarter: 2014Q2

REPORT INFORMATION
  Report Type: Spontaneous
  Country: US (occurrence: None)
  Receive Date: 20140421
  Receipt Date: 20140421
  Transmission Date: 20141212
  Serious: No
  Sender: FDA-Public Use
  Company Number: None

PATIENT
  Age: 72 Year
  Sex: Male

DRUGS (9)
  1. POMALYST [Suspect]
     Indication: PLASMA CELL MYELOMA
     Dosage: 1 MG, DAILY X21D/28D, ORALLY, 1 CYCLE
     Dates: start: 20140315
  2. DEXAMETHASONE [Concomitant]
  3. FLUCONAZOLE [Concomitant]
  4. RANITIDINE [Concomitant]
  5. SULFAMETHOXAZOLE/TRIMETHORIM [Concomitant]
  6. EPOETIN [Concomitant]
  7. ACYCLOVIR [Concomitant]
  8. ONDANSETRON [Concomitant]
  9. ASA [Concomitant]

REACTIONS (1)
  - Fluid retention [None]
